FAERS Safety Report 24824843 (Version 1)
Quarter: 2025Q1

REPORT INFORMATION
  Report Type: Spontaneous
  Country: US (occurrence: US)
  Receive Date: 20250109
  Receipt Date: 20250109
  Transmission Date: 20250409
  Serious: No
  Sender: MERCK
  Company Number: US-009507513-2501USA001000

PATIENT
  Sex: Female

DRUGS (8)
  1. JANUVIA [Suspect]
     Active Substance: SITAGLIPTIN PHOSPHATE
     Indication: Glucose tolerance impaired
     Dosage: 100 MILLIGRAM, QD
     Route: 048
     Dates: start: 2024
  2. HYDROXYCHLOROQUINE [Concomitant]
     Active Substance: HYDROXYCHLOROQUINE
  3. SIMVASTATIN [Concomitant]
     Active Substance: SIMVASTATIN
  4. GABAPENTIN [Concomitant]
     Active Substance: GABAPENTIN
  5. METAXALONE [Concomitant]
     Active Substance: METAXALONE
  6. TAMSULOSIN [Concomitant]
     Active Substance: TAMSULOSIN
  7. DULOXETINE [Concomitant]
     Active Substance: DULOXETINE
  8. MELOXICAM [Concomitant]
     Active Substance: MELOXICAM

REACTIONS (4)
  - Blood glucose increased [Not Recovered/Not Resolved]
  - Food craving [Not Recovered/Not Resolved]
  - Weight fluctuation [Not Recovered/Not Resolved]
  - Product use in unapproved indication [Unknown]
